FAERS Safety Report 13636321 (Version 1)
Quarter: 2017Q2

REPORT INFORMATION
  Report Type: Spontaneous
  Country: US (occurrence: US)
  Receive Date: 20170531
  Receipt Date: 20170531
  Transmission Date: 20170830
  Serious: No
  Sender: FDA-Public Use
  Company Number: US-ASTELLAS-1810267

PATIENT
  Age: 84 Year
  Sex: Female

DRUGS (6)
  1. TARCEVA [Suspect]
     Active Substance: ERLOTINIB HYDROCHLORIDE
     Indication: LUNG NEOPLASM MALIGNANT
     Route: 048
     Dates: start: 20160806
  2. ATENOLOL. [Concomitant]
     Active Substance: ATENOLOL
     Route: 065
  3. BENZONATATE. [Concomitant]
     Active Substance: BENZONATATE
     Route: 065
  4. ZOLPIDEM [Concomitant]
     Active Substance: ZOLPIDEM\ZOLPIDEM TARTRATE
     Route: 065
  5. LISINOPRIL/HCTZ [Concomitant]
     Active Substance: HYDROCHLOROTHIAZIDE\LISINOPRIL
     Dosage: DOSE: 20-12.5 (UNIT NOT REPORTED).
     Route: 065
  6. LOVASTATIN. [Concomitant]
     Active Substance: LOVASTATIN
     Route: 065

REACTIONS (1)
  - Flatulence [Not Recovered/Not Resolved]

NARRATIVE: CASE EVENT DATE: 20160806
